FAERS Safety Report 21163406 (Version 3)
Quarter: 2022Q3

REPORT INFORMATION
  Report Type: Other
  Country: US (occurrence: None)
  Receive Date: 20220802
  Receipt Date: 20220825
  Transmission Date: 20221027
  Serious: Yes (Other)
  Sender: FDA-Public Use
  Company Number: US-ROCHE-3149222

PATIENT
  Sex: Female

DRUGS (6)
  1. OCREVUS [Suspect]
     Active Substance: OCRELIZUMAB
     Indication: Product used for unknown indication
     Dosage: SECOND DOSE: /APR/2022
     Route: 065
     Dates: start: 202203
  2. OCREVUS [Suspect]
     Active Substance: OCRELIZUMAB
     Dosage: SECOND DOSE
     Route: 065
     Dates: start: 202204
  3. ARMODAFINIL [Concomitant]
     Active Substance: ARMODAFINIL
  4. LYRICA [Concomitant]
     Active Substance: PREGABALIN
  5. BIOTIN [Concomitant]
     Active Substance: BIOTIN
  6. VITAMIN A [Concomitant]
     Active Substance: VITAMIN A

REACTIONS (3)
  - Arthralgia [Recovering/Resolving]
  - Pain [Unknown]
  - Alopecia [Unknown]
